FAERS Safety Report 5141147-4 (Version None)
Quarter: 2006Q4

REPORT INFORMATION
  Report Type: 
  Country: None (occurrence: None)
  Receive Date: 20061101
  Receipt Date: 20061019
  Transmission Date: 20070319
  Serious: Yes (Other)
  Sender: FDA-Public Use
  Company Number: PHBS2006BE16384

PATIENT
  Age: 82 Year
  Sex: Female

DRUGS (2)
  1. HORMONES [Concomitant]
     Indication: BREAST CANCER
     Route: 065
  2. AREDIA [Suspect]
     Indication: BREAST CANCER METASTATIC
     Dosage: 90 MG, EVERY 4 WEEKS
     Route: 042
     Dates: start: 20000417, end: 20060615

REACTIONS (3)
  - ABSCESS ORAL [None]
  - OSTEONECROSIS [None]
  - TOOTH EXTRACTION [None]
